FAERS Safety Report 9076194 (Version 1)
Quarter: 2013Q1

REPORT INFORMATION
  Report Type: Report from Study
  Country: US (occurrence: US)
  Receive Date: 20130129
  Receipt Date: 20130129
  Transmission Date: 20140127
  Serious: No
  Sender: FDA-Public Use
  Company Number: US-ABBOTT-12P-163-0932684-00

PATIENT
  Age: 48 Year
  Sex: Female

DRUGS (3)
  1. HUMIRA 40 MG/0.8 ML PEN [Suspect]
     Indication: CROHN^S DISEASE
     Dates: start: 20120421
  2. APRISO [Concomitant]
     Indication: CROHN^S DISEASE
  3. TYLENOL [Concomitant]
     Indication: PAIN
     Dosage: PRN

REACTIONS (4)
  - Abdominal pain upper [Not Recovered/Not Resolved]
  - Haematochezia [Recovering/Resolving]
  - Haemorrhoids [Recovering/Resolving]
  - Abdominal pain upper [Recovering/Resolving]
